FAERS Safety Report 12322652 (Version 1)
Quarter: 2016Q2

REPORT INFORMATION
  Report Type: Spontaneous
  Country: US (occurrence: US)
  Receive Date: 20160502
  Receipt Date: 20160502
  Transmission Date: 20160815
  Serious: No
  Sender: FDA-Public Use
  Company Number: US-PFIZER INC-2016226297

PATIENT
  Age: 49 Year
  Sex: Female
  Weight: 83.46 kg

DRUGS (2)
  1. CHANTIX [Suspect]
     Active Substance: VARENICLINE TARTRATE
     Indication: SMOKING CESSATION THERAPY
     Dosage: 0.5 MG, 1X/DAY (0.5MG TABLET ONE A DAY BY MOUTH FOR 6 DAYS)
     Route: 048
     Dates: start: 20160316, end: 20160321
  2. CHANTIX [Suspect]
     Active Substance: VARENICLINE TARTRATE
     Dosage: 1 MG, 1X/DAY (TOOK 1.0MG TABLET ONE A DAY BY MOUTH FOR 15 DAYS)
     Route: 048
     Dates: start: 20160322, end: 20160406

REACTIONS (2)
  - Mood swings [Not Recovered/Not Resolved]
  - Drug withdrawal syndrome [Not Recovered/Not Resolved]

NARRATIVE: CASE EVENT DATE: 20160316
